FAERS Safety Report 8809273 (Version 1)
Quarter: 2012Q4

REPORT INFORMATION
  Report Type: Spontaneous
  Country: US (occurrence: None)
  Receive Date: 20120924
  Receipt Date: 20120924
  Transmission Date: 20130627
  Serious: Yes (Other)
  Sender: FDA-Public Use
  Company Number: None

PATIENT

DRUGS (1)
  1. IRON SUCROSE [Suspect]
     Indication: ANEMIA
     Route: 040
     Dates: start: 20120903, end: 20120903

REACTIONS (2)
  - Infusion site pain [None]
  - Nausea [None]
